FAERS Safety Report 9165024 (Version 1)
Quarter: 2013Q1

REPORT INFORMATION
  Report Type: Spontaneous
  Country: US (occurrence: None)
  Receive Date: 20130226
  Receipt Date: 20130226
  Transmission Date: 20140127
  Serious: Yes (Other)
  Sender: FDA-Public Use
  Company Number: VAL_01367_2013

PATIENT
  Sex: Female

DRUGS (6)
  1. METOPROLOL [Suspect]
     Indication: HYPERTENSION
     Route: 048
  2. METOPROLOL [Suspect]
     Indication: BLOOD PRESSURE
     Route: 048
  3. QUINAPRIL [Suspect]
     Indication: HYPERTENSION
     Route: 048
     Dates: start: 20121216, end: 20121230
  4. BEVEN [Suspect]
     Indication: PRODUCT USED FOR UNKNOWN INDICATION
     Dosage: (DF)
  5. LISINOPRIL [Suspect]
     Indication: PRODUCT USED FOR UNKNOWN INDICATION
     Dosage: (DF)
  6. AMLODIPINE [Suspect]
     Indication: PRODUCT USED FOR UNKNOWN INDICATION
     Dosage: (DF)

REACTIONS (4)
  - Cough [None]
  - Insomnia [None]
  - Oesophageal spasm [None]
  - Feeling abnormal [None]
